FAERS Safety Report 11689025 (Version 2)
Quarter: 2015Q4

REPORT INFORMATION
  Report Type: Spontaneous
  Country: PK (occurrence: PK)
  Receive Date: 20151102
  Receipt Date: 20151124
  Transmission Date: 20160304
  Serious: Yes (Hospitalization)
  Sender: FDA-Public Use
  Company Number: PK-ACCORD-035013

PATIENT
  Age: 29 Year
  Sex: Male

DRUGS (2)
  1. CARBOPLATIN. [Suspect]
     Active Substance: CARBOPLATIN
     Indication: OESOPHAGEAL ADENOCARCINOMA
     Dosage: AUC 5 ON DAY ONE
  2. FLUOROURACIL. [Suspect]
     Active Substance: FLUOROURACIL
     Indication: OESOPHAGEAL ADENOCARCINOMA
     Dosage: 24-HOUR CONTINUOUS,?FROM DAY 1 TO DAY 5.

REACTIONS (10)
  - Demyelination [Recovered/Resolved]
  - Myocardial ischaemia [Unknown]
  - VIIth nerve paralysis [Recovered/Resolved]
  - Metabolic acidosis [Unknown]
  - Cardiomyopathy [Unknown]
  - Arrhythmia [Recovered/Resolved]
  - Confusional state [Recovered/Resolved]
  - Aphasia [Recovered/Resolved]
  - Renal failure [Recovered/Resolved]
  - Hemianopia [Recovered/Resolved]
